FAERS Safety Report 6946916-3 (Version None)
Quarter: 2010Q3

REPORT INFORMATION
  Report Type: 
  Country: None (occurrence: None)
  Receive Date: 20100827
  Receipt Date: 20090817
  Transmission Date: 20110219
  Serious: No
  Sender: FDA-Public Use
  Company Number: US-ABBOTT-09P-163-0592687-00

PATIENT
  Sex: Male
  Weight: 75.364 kg

DRUGS (10)
  1. NIASPAN [Suspect]
     Indication: HIGH DENSITY LIPOPROTEIN DECREASED
     Dates: start: 20090711, end: 20090718
  2. NIASPAN [Suspect]
     Dates: start: 20090718, end: 20090821
  3. NIASPAN [Suspect]
     Dates: start: 20090815
  4. LIPITOR [Suspect]
     Indication: HIGH DENSITY LIPOPROTEIN DECREASED
     Dates: start: 20090701, end: 20090701
  5. LIPITOR [Suspect]
     Dates: start: 20090701, end: 20090815
  6. LIPITOR [Suspect]
     Dates: start: 20090815
  7. BENICAR [Concomitant]
     Indication: HYPERTENSION
  8. NORVASC [Concomitant]
     Indication: HYPERTENSION
  9. FOLIC ACID [Concomitant]
     Indication: CARDIOVASCULAR EVENT PROPHYLAXIS
     Dosage: UNKNOWN
     Dates: start: 20090701
  10. FOLIC ACID [Concomitant]
     Indication: BLOOD CHOLESTEROL INCREASED

REACTIONS (5)
  - DIZZINESS [None]
  - FLUSHING [None]
  - INCORRECT DRUG ADMINISTRATION DURATION [None]
  - LETHARGY [None]
  - PALLOR [None]
